FAERS Safety Report 16175903 (Version 1)
Quarter: 2019Q2

REPORT INFORMATION
  Report Type: Spontaneous
  Country: IL (occurrence: IL)
  Receive Date: 20190409
  Receipt Date: 20190409
  Transmission Date: 20190711
  Serious: Yes (Hospitalization, Other)
  Sender: FDA-Public Use
  Company Number: IL-APOPHARMA-2019AP007464

PATIENT
  Age: 30 Year
  Sex: Female
  Weight: 55 kg

DRUGS (4)
  1. CLEXANE [Concomitant]
     Active Substance: ENOXAPARIN SODIUM
     Indication: LABOUR PAIN
  2. FERRIPROX [Suspect]
     Active Substance: DEFERIPRONE
     Indication: THALASSAEMIA
     Dosage: 33.3 MG/KG, TID
     Route: 048
     Dates: start: 20181004, end: 20181115
  3. FERRIPROX [Suspect]
     Active Substance: DEFERIPRONE
     Dosage: 33.3 MG/KG, TID
     Route: 048
     Dates: start: 201711, end: 201802
  4. CLEXANE [Concomitant]
     Active Substance: ENOXAPARIN SODIUM
     Indication: PREGNANCY
     Dosage: UNK
     Dates: start: 20181025, end: 20181025

REACTIONS (3)
  - Agranulocytosis [Recovered/Resolved]
  - Nasopharyngitis [Unknown]
  - Sinusitis [Unknown]

NARRATIVE: CASE EVENT DATE: 20181104
